FAERS Safety Report 6985048-5 (Version None)
Quarter: 2010Q3

REPORT INFORMATION
  Report Type: 
  Country: None (occurrence: None)
  Receive Date: 20100915
  Receipt Date: 20100903
  Transmission Date: 20110219
  Serious: Yes (Other)
  Sender: FDA-Public Use
  Company Number: PHHY2010AR58722

PATIENT
  Age: 12 Year
  Sex: Female

DRUGS (2)
  1. TEGRETOL [Suspect]
     Dosage: 200 MG, QD
     Dates: end: 20100826
  2. TRILEPTAL [Concomitant]
     Dosage: UNK
     Dates: start: 20100826

REACTIONS (2)
  - CLUMSINESS [None]
  - DIZZINESS [None]
